FAERS Safety Report 8724249 (Version 2)
Quarter: 2012Q4

REPORT INFORMATION
  Report Type: Spontaneous
  Country: FI (occurrence: None)
  Receive Date: 20120727
  Receipt Date: 20120830
  Transmission Date: 20130627
  Serious: Yes (Other)
  Sender: FDA-Public Use
  Company Number: 1354500

PATIENT
  Age: 64 Year
  Sex: Male

DRUGS (3)
  1. OXALIPLATIN [Suspect]
     Indication: COLON CANCER
     Dosage: 20 ML MILLILITRE(S), INTRAVENOUS DRIP ; 40 ML MILLILITRE(S) INTRAVENOUS DRIP
     Route: 041
     Dates: start: 20120713, end: 20120713
  2. OXALIPLATIN [Suspect]
     Indication: COLON CANCER
     Dosage: 20 ML MILLILITRE(S), INTRAVENOUS DRIP ; 40 ML MILLILITRE(S) INTRAVENOUS DRIP
     Route: 041
     Dates: start: 20120713, end: 20120713
  3. XELODA [Concomitant]

REACTIONS (2)
  - Presyncope [None]
  - Throat tightness [None]
